FAERS Safety Report 4716046-X (Version None)
Quarter: 2005Q3

REPORT INFORMATION
  Report Type: 
  Country: None (occurrence: None)
  Receive Date: 20050718
  Receipt Date: 20050623
  Transmission Date: 20060218
  Serious: Yes (Hospitalization, Other)
  Sender: FDA-Public Use
  Company Number: JP-BRISTOL-MYERS SQUIBB COMPANY-13038021

PATIENT
  Age: 64 Year
  Sex: Male

DRUGS (1)
  1. IFOSFAMIDE [Suspect]
     Indication: PROSTATE CANCER
     Dates: start: 20050607, end: 20050609

REACTIONS (2)
  - ENCEPHALOPATHY [None]
  - HYDRONEPHROSIS [None]
